FAERS Safety Report 7760332-6 (Version None)
Quarter: 2011Q3

REPORT INFORMATION
  Report Type: 
  Country: None (occurrence: None)
  Receive Date: 20110919
  Receipt Date: 20110912
  Transmission Date: 20111222
  Serious: Yes (Hospitalization)
  Sender: FDA-Public Use
  Company Number: US-B.I. PHARMACEUTICALS,INC./RIDGEFIELD-2011-BP-19217BP

PATIENT
  Age: 64 Year
  Sex: Male
  Weight: 91.63 kg

DRUGS (3)
  1. PRADAXA [Suspect]
     Indication: ATRIAL FIBRILLATION
     Dosage: 300 MG
     Route: 048
     Dates: start: 20110331, end: 20110624
  2. PRADAXA [Suspect]
     Indication: CARDIAC FAILURE CONGESTIVE
  3. WARFARIN SODIUM [Concomitant]
     Dates: start: 20110626

REACTIONS (2)
  - DYSPEPSIA [None]
  - ISCHAEMIC STROKE [None]
